FAERS Safety Report 19919600 (Version 2)
Quarter: 2023Q4

REPORT INFORMATION
  Report Type: Report from Study
  Country: FR (occurrence: FR)
  Receive Date: 20211005
  Receipt Date: 20231017
  Transmission Date: 20240109
  Serious: Yes (Hospitalization)
  Sender: FDA-Public Use
  Company Number: FR-TAKEDA-2021TUS061126

PATIENT
  Age: 10 Year
  Sex: Male

DRUGS (9)
  1. TEDUGLUTIDE [Suspect]
     Active Substance: TEDUGLUTIDE
     Indication: Short-bowel syndrome
     Dosage: 1.2 MILLIGRAM, QD
     Route: 042
     Dates: start: 20181123, end: 20200701
  2. TEDUGLUTIDE [Suspect]
     Active Substance: TEDUGLUTIDE
     Indication: Short-bowel syndrome
     Dosage: 1.2 MILLIGRAM, QD
     Route: 042
     Dates: start: 20181123, end: 20200701
  3. TEDUGLUTIDE [Suspect]
     Active Substance: TEDUGLUTIDE
     Indication: Short-bowel syndrome
     Dosage: 1.2 MILLIGRAM, QD
     Route: 042
     Dates: start: 20181123, end: 20200701
  4. TEDUGLUTIDE [Suspect]
     Active Substance: TEDUGLUTIDE
     Indication: Short-bowel syndrome
     Dosage: 1.2 MILLIGRAM, QD
     Route: 042
     Dates: start: 20181123, end: 20200701
  5. FUCIDIN [Concomitant]
     Active Substance: FUSIDATE SODIUM
     Indication: Catheter site erythema
     Dosage: 2 PERCENT, QD
     Route: 058
     Dates: start: 20190911, end: 201909
  6. BETAMETHASONE [Concomitant]
     Active Substance: BETAMETHASONE
     Indication: Laryngitis
     Dosage: 1 DOSAGE FORM, QD
     Route: 048
     Dates: start: 20190513, end: 20190515
  7. ACETAMINOPHEN [Concomitant]
     Active Substance: ACETAMINOPHEN
     Indication: Laryngitis
     Dosage: 1 GRAM
     Route: 048
     Dates: start: 20190513, end: 20190515
  8. URSODIOL [Concomitant]
     Active Substance: URSODIOL
     Indication: Hepatic fibrosis
     Dosage: 200 MILLIGRAM, BID
     Route: 048
     Dates: start: 20200707
  9. Celestene [Concomitant]
     Indication: Laryngitis
     Dosage: UNK UNK, QD
     Route: 048
     Dates: start: 20190513, end: 20190515

REACTIONS (1)
  - Device leakage [Recovered/Resolved]

NARRATIVE: CASE EVENT DATE: 20210705
